FAERS Safety Report 23264178 (Version 1)
Quarter: 2023Q4

REPORT INFORMATION
  Report Type: Spontaneous
  Country: CN (occurrence: CN)
  Receive Date: 20231205
  Receipt Date: 20231205
  Transmission Date: 20240110
  Serious: Yes (Hospitalization)
  Sender: FDA-Public Use
  Company Number: CN-PFIZER INC-PV202300196222

PATIENT
  Age: 27 Year
  Sex: Female
  Weight: 50 kg

DRUGS (1)
  1. AXITINIB [Suspect]
     Active Substance: AXITINIB
     Indication: Renal cancer
     Dosage: 5 MG, 2X/DAY
     Route: 048
     Dates: end: 20231129

REACTIONS (4)
  - Hypertension [Recovering/Resolving]
  - Hypovolaemic shock [Recovered/Resolved]
  - Diarrhoea [Recovering/Resolving]
  - Toothache [Unknown]

NARRATIVE: CASE EVENT DATE: 20231125
